FAERS Safety Report 11822457 (Version 1)
Quarter: 2015Q4

REPORT INFORMATION
  Report Type: Spontaneous
  Country: US (occurrence: US)
  Receive Date: 20151210
  Receipt Date: 20151210
  Transmission Date: 20160305
  Serious: Yes (Hospitalization)
  Sender: FDA-Public Use
  Company Number: US-JNJFOC-20150516619

PATIENT
  Age: 58 Year
  Sex: Female

DRUGS (18)
  1. CRANBERRY CONCENTRATE [Concomitant]
     Active Substance: CRANBERRY CONCENTRATE
  2. FOLIC ACID. [Concomitant]
     Active Substance: FOLIC ACID
  3. HUMALOG [Concomitant]
     Active Substance: INSULIN LISPRO
  4. LANTUS [Concomitant]
     Active Substance: INSULIN GLARGINE
  5. CYCLOBENZAPRINE [Concomitant]
     Active Substance: CYCLOBENZAPRINE
  6. TRAMADOL. [Concomitant]
     Active Substance: TRAMADOL
  7. KRISTALOSE [Concomitant]
     Active Substance: LACTULOSE
  8. MAGNESIUM OXIDE. [Concomitant]
     Active Substance: MAGNESIUM OXIDE
  9. ASPIRIN. [Concomitant]
     Active Substance: ASPIRIN
  10. ATORVASTATIN [Concomitant]
     Active Substance: ATORVASTATIN
  11. CARVEDILOL. [Concomitant]
     Active Substance: CARVEDILOL
  12. NAPROXEN. [Concomitant]
     Active Substance: NAPROXEN
  13. CENTRUM NOS [Concomitant]
  14. CITALOPRAM [Concomitant]
     Active Substance: CITALOPRAM HYDROBROMIDE
  15. AMLODIPINE [Concomitant]
     Active Substance: AMLODIPINE BESYLATE
  16. CINNAMON. [Concomitant]
     Active Substance: CINNAMON
  17. VITAMIN D [Concomitant]
     Active Substance: CHOLECALCIFEROL
  18. IMBRUVICA [Suspect]
     Active Substance: IBRUTINIB
     Indication: B-CELL LYMPHOMA
     Route: 048
     Dates: start: 20140326

REACTIONS (3)
  - Incorrect dose administered [Unknown]
  - Infection [Unknown]
  - Localised infection [Unknown]

NARRATIVE: CASE EVENT DATE: 20140326
